FAERS Safety Report 6105226-7 (Version None)
Quarter: 2009Q1

REPORT INFORMATION
  Report Type: 
  Country: None (occurrence: None)
  Receive Date: 20090304
  Receipt Date: 20090223
  Transmission Date: 20090719
  Serious: No
  Sender: FDA-Public Use
  Company Number: 2009SP003395

PATIENT
  Age: 71 Year
  Sex: Female
  Weight: 77.1115 kg

DRUGS (2)
  1. MIRALAX [Suspect]
     Indication: CONSTIPATION
     Dosage: 17 GM; PO
     Route: 048
     Dates: start: 20090205, end: 20090210
  2. MIRALAX [Suspect]
     Indication: LAXATIVE SUPPORTIVE CARE
     Dosage: 17 GM; PO
     Route: 048
     Dates: start: 20090205, end: 20090210

REACTIONS (5)
  - ABDOMINAL PAIN UPPER [None]
  - DRUG INEFFECTIVE [None]
  - HAEMATOCHEZIA [None]
  - MUSCLE SPASMS [None]
  - RECTAL HAEMORRHAGE [None]
